FAERS Safety Report 20643099 (Version 1)
Quarter: 2022Q1

REPORT INFORMATION
  Report Type: Spontaneous
  Country: US (occurrence: None)
  Receive Date: 20220325
  Receipt Date: 20220325
  Transmission Date: 20220423
  Serious: Yes (Hospitalization)
  Sender: FDA-Public Use
  Company Number: None

PATIENT
  Sex: Female

DRUGS (1)
  1. CREON [Suspect]
     Active Substance: PANCRELIPASE AMYLASE\PANCRELIPASE LIPASE\PANCRELIPASE PROTEASE
     Indication: Cystic fibrosis
     Dosage: OTHER QUANTITY : 3000-9500 UNIT ;?FREQUENCY : DAILY;?TAKE 1 CAPSULE BY MOUTH WITH EACH FEED - MAXIMU
     Route: 048

REACTIONS (3)
  - Dyspnoea [None]
  - Cough [None]
  - Increased viscosity of upper respiratory secretion [None]
